FAERS Safety Report 16747683 (Version 5)
Quarter: 2021Q4

REPORT INFORMATION
  Report Type: Spontaneous
  Country: JP (occurrence: JP)
  Receive Date: 20190827
  Receipt Date: 20211008
  Transmission Date: 20220303
  Serious: Yes (Hospitalization)
  Sender: FDA-Public Use
  Company Number: 2019SF21146

PATIENT
  Age: 30595 Day
  Sex: Female
  Weight: 58 kg

DRUGS (10)
  1. LYNPARZA [Suspect]
     Active Substance: OLAPARIB
     Indication: Ovarian cancer
     Route: 048
     Dates: start: 20190530, end: 20190816
  2. LOXOPROFEN [Concomitant]
     Active Substance: LOXOPROFEN
     Indication: Spondylolisthesis
     Dosage: 60 MG, AS REQUIRED, SINCE BEFORE SEP 2017
     Route: 048
     Dates: end: 20190816
  3. HERBALS [Concomitant]
     Active Substance: HERBALS
     Indication: Neuropathy peripheral
     Route: 048
     Dates: start: 201805, end: 20190816
  4. NIFEDIPINE [Concomitant]
     Active Substance: NIFEDIPINE
     Indication: Hypertension
     Dosage: 20 MG EVERY DAY, SINCE BEFORE SEP 2017
     Route: 048
  5. MAGNESIUM OXIDE [Concomitant]
     Active Substance: MAGNESIUM OXIDE
     Indication: Constipation
     Route: 048
     Dates: start: 201711
  6. TELMISARTAN [Concomitant]
     Active Substance: TELMISARTAN
     Indication: Hypertension
     Route: 048
     Dates: start: 201806
  7. TEPRENONE [Concomitant]
     Active Substance: TEPRENONE
     Indication: Spondylolisthesis
     Dosage: 50.0MG AS REQUIRED
     Route: 048
     Dates: start: 201801, end: 20190816
  8. LYRICA [Concomitant]
     Active Substance: PREGABALIN
     Indication: Spondylolisthesis
     Route: 048
     Dates: start: 201804
  9. NOVAMIN [Concomitant]
     Indication: Vomiting
     Route: 048
     Dates: start: 20190530
  10. LIMAPROST [Concomitant]
     Active Substance: LIMAPROST
     Indication: Spondylolisthesis
     Route: 048
     Dates: start: 20190108

REACTIONS (3)
  - Interstitial lung disease [Recovered/Resolved]
  - Neutrophil count decreased [Unknown]
  - Anaemia [Unknown]

NARRATIVE: CASE EVENT DATE: 20190810
